FAERS Safety Report 5375909-5 (Version None)
Quarter: 2007Q3

REPORT INFORMATION
  Report Type: 
  Country: None (occurrence: None)
  Receive Date: 20070702
  Receipt Date: 20070625
  Transmission Date: 20080115
  Serious: Yes (Hospitalization)
  Sender: FDA-Public Use
  Company Number: ES-JNJFOC-20070604915

PATIENT
  Age: 62 Year
  Sex: Male

DRUGS (3)
  1. REMICADE [Suspect]
     Indication: COLITIS ULCERATIVE
     Dosage: FIRST DOSE
     Route: 042
  2. 5 AMINOSALICYLIC ACID [Concomitant]
     Indication: COLITIS ULCERATIVE
     Dosage: MAINTENANCE THERAPY
  3. AZATHIOPRINE [Concomitant]

REACTIONS (1)
  - MENINGITIS LISTERIA [None]
